FAERS Safety Report 8585349 (Version 3)
Quarter: 2013Q1

REPORT INFORMATION
  Report Type: Spontaneous
  Country: US (occurrence: US)
  Receive Date: 20120530
  Receipt Date: 20130307
  Transmission Date: 20140127
  Serious: Yes (Hospitalization)
  Sender: FDA-Public Use
  Company Number: US-ELI_LILLY_AND_COMPANY-US201204005921

PATIENT
  Age: 55 None
  Sex: Female

DRUGS (11)
  1. FORTEO [Suspect]
     Indication: OSTEOPOROSIS
     Dosage: 20 UG, QD
     Dates: start: 201202
  2. FORTEO [Suspect]
     Dosage: 20 UG, QD
  3. FORTEO [Suspect]
     Dosage: 20 UG, QD
     Dates: start: 201202
  4. AROMASIN [Concomitant]
     Dosage: UNK
  5. TOPAMAX [Concomitant]
     Dosage: UNK
  6. EFFEXOR [Concomitant]
  7. ZYRTEC [Concomitant]
     Dosage: UNK
  8. CITRACAL [Concomitant]
     Dosage: UNK
  9. VITAMIN D [Concomitant]
     Dosage: UNK
  10. ACIDOPHILUS [Concomitant]
     Dosage: UNK
  11. ATIVAN [Concomitant]
     Dosage: UNK

REACTIONS (11)
  - Appendicitis perforated [Unknown]
  - Abscess [Unknown]
  - Back pain [Unknown]
  - Decreased appetite [Unknown]
  - Musculoskeletal discomfort [Unknown]
  - Back disorder [Not Recovered/Not Resolved]
  - Insomnia [Unknown]
  - Clostridium difficile infection [Not Recovered/Not Resolved]
  - Toothache [Unknown]
  - Tooth fracture [Unknown]
  - Tooth infection [Unknown]
